FAERS Safety Report 9925611 (Version 14)
Quarter: 2016Q3

REPORT INFORMATION
  Report Type: Spontaneous
  Country: US (occurrence: US)
  Receive Date: 20140226
  Receipt Date: 20160815
  Transmission Date: 20161109
  Serious: Yes (Other)
  Sender: FDA-Public Use
  Company Number: US-GLAXOSMITHKLINE-A1044644A

PATIENT
  Age: 45 Year
  Sex: Female

DRUGS (13)
  1. FLOLAN [Suspect]
     Active Substance: EPOPROSTENOL SODIUM
     Dosage: UNK
     Dates: start: 19991027
  2. FLOLAN [Suspect]
     Active Substance: EPOPROSTENOL SODIUM
     Dosage: UNK, Z
  3. FLOLAN [Suspect]
     Active Substance: EPOPROSTENOL SODIUM
     Dosage: 32 NG/KG/MIN
  4. COUMADIN [Concomitant]
     Active Substance: WARFARIN SODIUM
  5. FLOLAN [Suspect]
     Active Substance: EPOPROSTENOL SODIUM
     Indication: PULMONARY ARTERIAL HYPERTENSION
     Dosage: DOSE: 32 NG/KG/MINCONCENTRATION: 45,000 NG/MLPUMP RATE: 80 ML/DAYVIAL STRENGTH: 1.5 MG
     Route: 042
     Dates: start: 19991027
  6. FLOLAN [Suspect]
     Active Substance: EPOPROSTENOL SODIUM
     Dosage: UNK
     Dates: start: 19991027
  7. FLOLAN [Suspect]
     Active Substance: EPOPROSTENOL SODIUM
     Dosage: 32 NG/KG/MIN CONTINUOUSLY
     Route: 042
  8. TRACLEER [Concomitant]
     Active Substance: BOSENTAN
  9. FLOLAN [Suspect]
     Active Substance: EPOPROSTENOL SODIUM
     Dosage: 32 NG/KG/MIN, CO
  10. FLOLAN [Suspect]
     Active Substance: EPOPROSTENOL SODIUM
     Dosage: UNK
     Dates: start: 19991027
  11. FLOLAN [Suspect]
     Active Substance: EPOPROSTENOL SODIUM
     Dosage: UNK
     Dates: start: 19991027
  12. FLOLAN [Suspect]
     Active Substance: EPOPROSTENOL SODIUM
     Dosage: 32 NG/KG/MIN (CONCENTRATION 45,000, PUMP RATE 80 ML/DAY, VIAL STRENGTH 1.5 MG), CO
     Route: 042
  13. ADCIRCA [Concomitant]
     Active Substance: TADALAFIL

REACTIONS (10)
  - Device related infection [Unknown]
  - Catheter removal [Unknown]
  - Central venous catheterisation [Unknown]
  - Central venous catheterisation [Recovered/Resolved]
  - Infection [Unknown]
  - Device breakage [Unknown]
  - Staphylococcal infection [Not Recovered/Not Resolved]
  - Soft tissue infection [Unknown]
  - Skin infection [Unknown]
  - Catheter site infection [Not Recovered/Not Resolved]

NARRATIVE: CASE EVENT DATE: 20131213
